FAERS Safety Report 5073165-9 (Version None)
Quarter: 2006Q3

REPORT INFORMATION
  Report Type: 
  Country: None (occurrence: None)
  Receive Date: 20060808
  Receipt Date: 20060726
  Transmission Date: 20061208
  Serious: Yes (Other)
  Sender: FDA-Public Use
  Company Number: PHBS2006JP11309

PATIENT
  Age: 23 Year
  Sex: Male

DRUGS (3)
  1. METHYLPHENIDATE HCL [Suspect]
     Indication: DEPRESSION
     Dosage: 1 DF, BIW
     Route: 048
  2. METHYLPHENIDATE HCL [Suspect]
     Dosage: 5-6 TABLETS/D
     Route: 048
  3. METHYLPHENIDATE HCL [Suspect]
     Dosage: 60 MG/D
     Route: 048

REACTIONS (4)
  - DELUSION [None]
  - DEPRESSION [None]
  - DRUG DEPENDENCE [None]
  - SUICIDAL IDEATION [None]
